FAERS Safety Report 9052706 (Version 1)
Quarter: 2013Q1

REPORT INFORMATION
  Report Type: Report from Study
  Country: GB (occurrence: GB)
  Receive Date: 20130207
  Receipt Date: 20130207
  Transmission Date: 20140127
  Serious: Yes (Hospitalization)
  Sender: FDA-Public Use
  Company Number: GB-ROCHE-1099614

PATIENT
  Age: 76 None
  Sex: Male

DRUGS (19)
  1. RITUXIMAB [Suspect]
     Indication: RHEUMATOID ARTHRITIS
     Route: 065
     Dates: start: 20080808
  2. METHOTREXATE [Concomitant]
     Route: 065
     Dates: start: 20060814
  3. CLEXANE [Concomitant]
     Dosage: FOR 24 DAY
     Route: 058
  4. ORAMORPH [Concomitant]
     Dosage: 10-30 MG 4 HOURLY PRN
     Route: 065
  5. OMEPRAZOLE [Concomitant]
     Route: 065
  6. CLARITHROMYCIN [Concomitant]
     Route: 065
  7. METFORMIN [Concomitant]
     Route: 065
  8. CLOPIDOGREL [Concomitant]
     Route: 065
  9. FOLIC ACID [Concomitant]
     Route: 065
  10. ADCAL - D3 [Concomitant]
     Route: 065
  11. ALENDRONATE [Concomitant]
     Route: 065
  12. PRAVASTATIN [Concomitant]
     Route: 065
  13. CITALOPRAM [Concomitant]
     Route: 065
  14. ASPIRIN [Concomitant]
     Route: 065
  15. CARBOCISTEINE [Concomitant]
     Route: 065
  16. CO-CODAMOL [Concomitant]
     Dosage: QDS
     Route: 065
  17. MAGNESIUM HYDROXIDE [Concomitant]
     Route: 065
  18. METHOTREXATE [Concomitant]
     Route: 065
  19. COLISTIN [Concomitant]
     Dosage: 1 MU
     Route: 065

REACTIONS (1)
  - Femoral neck fracture [Unknown]
